FAERS Safety Report 13962462 (Version 1)
Quarter: 2017Q3

REPORT INFORMATION
  Report Type: Spontaneous
  Country: US (occurrence: US)
  Receive Date: 20170913
  Receipt Date: 20170913
  Transmission Date: 20171128
  Serious: Yes (Other)
  Sender: FDA-Public Use
  Company Number: US-BEH-2017083419

PATIENT
  Sex: Male
  Weight: 58.96 kg

DRUGS (24)
  1. HIZENTRA [Suspect]
     Active Substance: HUMAN IMMUNOGLOBULIN G
     Indication: IMMUNODEFICIENCY COMMON VARIABLE
     Dosage: 7 G, QW
     Route: 058
     Dates: start: 20150518
  2. VENTOLIN [Concomitant]
     Active Substance: ALBUTEROL SULFATE
  3. CALCIUM+D3 [Concomitant]
  4. CLARITIN [Concomitant]
     Active Substance: LORATADINE
  5. CLONAZEPAM. [Concomitant]
     Active Substance: CLONAZEPAM
  6. ONFI [Concomitant]
     Active Substance: CLOBAZAM
  7. PROMETHAZINE [Concomitant]
     Active Substance: PROMETHAZINE\PROMETHAZINE HYDROCHLORIDE
  8. FLAXSEED [Concomitant]
     Active Substance: FLAX SEED
  9. VIMPAT [Concomitant]
     Active Substance: LACOSAMIDE
  10. KEPPRA [Concomitant]
     Active Substance: LEVETIRACETAM
  11. BACTROBAN [Concomitant]
     Active Substance: MUPIROCIN\MUPIROCIN CALCIUM
  12. BENEFIBER                          /00677201/ [Concomitant]
     Active Substance: ICODEXTRIN
  13. RETIN-A [Concomitant]
     Active Substance: TRETINOIN
  14. MULTIVITAMIN                       /00097801/ [Concomitant]
     Active Substance: VITAMINS
  15. TOPAMAX [Concomitant]
     Active Substance: TOPIRAMATE
  16. KLOR-CON [Concomitant]
     Active Substance: POTASSIUM CHLORIDE
  17. CLONIDINE. [Concomitant]
     Active Substance: CLONIDINE
  18. MAXALT [Concomitant]
     Active Substance: RIZATRIPTAN BENZOATE
  19. DELSYM [Concomitant]
     Active Substance: DEXTROMETHORPHAN
  20. ZOFRAN [Concomitant]
     Active Substance: ONDANSETRON HYDROCHLORIDE
  21. ALBUTEROL                          /00139501/ [Concomitant]
     Active Substance: ALBUTEROL
  22. HIZENTRA [Suspect]
     Active Substance: HUMAN IMMUNOGLOBULIN G
     Dosage: UNK
     Route: 058
  23. PRILOSEC [Concomitant]
     Active Substance: OMEPRAZOLE MAGNESIUM
  24. BENZACLIN [Concomitant]
     Active Substance: BENZOYL PEROXIDE\CLINDAMYCIN PHOSPHATE

REACTIONS (1)
  - Dyspnoea [Unknown]
